FAERS Safety Report 16689157 (Version 3)
Quarter: 2020Q4

REPORT INFORMATION
  Report Type: Spontaneous
  Country: BE (occurrence: BE)
  Receive Date: 20190809
  Receipt Date: 20201112
  Transmission Date: 20210113
  Serious: Yes (Other)
  Sender: FDA-Public Use
  Company Number: BE-ASTRAZENECA-2019SF11431

PATIENT
  Sex: Female
  Weight: 62 kg

DRUGS (23)
  1. ROACTEMRA [Suspect]
     Active Substance: TOCILIZUMAB
     Indication: OFF LABEL USE
     Route: 058
     Dates: start: 20181115
  2. LORMETAZEPAM [Concomitant]
     Active Substance: LORMETAZEPAM
     Indication: OFF LABEL USE
     Route: 065
  3. SERETIDE [Concomitant]
     Active Substance: FLUTICASONE PROPIONATE\SALMETEROL XINAFOATE
     Dosage: INHALER 25/250 MCG/DOSE 120 DOSES, 2 X2 PUFFS/DAY, 0.5 DAILY
     Route: 055
     Dates: start: 20190418
  4. CRESTOR [Suspect]
     Active Substance: ROSUVASTATIN CALCIUM
     Indication: HYPERCHOLESTEROLAEMIA
     Route: 048
  5. ROACTEMRA [Suspect]
     Active Substance: TOCILIZUMAB
     Indication: POLYCHONDRITIS
     Route: 042
     Dates: start: 20171102, end: 20171102
  6. ROACTEMRA [Suspect]
     Active Substance: TOCILIZUMAB
     Indication: OFF LABEL USE
     Route: 042
     Dates: start: 20171129, end: 20171129
  7. ARCOXIA [Concomitant]
     Active Substance: ETORICOXIB
     Indication: OFF LABEL USE
     Dosage: 60.0MG UNKNOWN
     Route: 065
  8. AZITHROMYCINE EG [Concomitant]
     Active Substance: AZITHROMYCIN DIHYDRATE
     Dosage: 500 MG, 0.33 - ONCE A WEEK
  9. ROACTEMRA [Suspect]
     Active Substance: TOCILIZUMAB
     Indication: POLYCHONDRITIS
     Route: 042
     Dates: start: 20180102, end: 20180102
  10. ROACTEMRA [Suspect]
     Active Substance: TOCILIZUMAB
     Indication: OFF LABEL USE
     Route: 042
     Dates: start: 20180102, end: 20180102
  11. SERETIDE [Concomitant]
     Active Substance: FLUTICASONE PROPIONATE\SALMETEROL XINAFOATE
     Dosage: INHALER 25/250 MCG/DOSE 120 DOSES, 2 X2 PUFFS/DAY, 0.5 DAILY
     Route: 055
     Dates: start: 20190529
  12. ROACTEMRA [Suspect]
     Active Substance: TOCILIZUMAB
     Indication: POLYCHONDRITIS
     Route: 058
     Dates: start: 20181115
  13. EUSAPRIM [Concomitant]
     Active Substance: SULFAMETHOXAZOLE\TRIMETHOPRIM
     Indication: OFF LABEL USE
     Dosage: 3 UNIT DAILY
     Route: 065
  14. ROACTEMRA [Suspect]
     Active Substance: TOCILIZUMAB
     Indication: POLYCHONDRITIS
     Route: 042
     Dates: start: 20171129, end: 20171129
  15. ROACTEMRA [Suspect]
     Active Substance: TOCILIZUMAB
     Indication: POLYCHONDRITIS
     Route: 058
     Dates: start: 201802
  16. ROACTEMRA [Suspect]
     Active Substance: TOCILIZUMAB
     Indication: POLYCHONDRITIS
     Route: 058
     Dates: start: 201901
  17. ROACTEMRA [Suspect]
     Active Substance: TOCILIZUMAB
     Indication: OFF LABEL USE
     Route: 058
     Dates: start: 201901
  18. PROLIA [Concomitant]
     Active Substance: DENOSUMAB
     Indication: OFF LABEL USE
     Dosage: 2 UNIT YEARLY
     Route: 058
  19. ROACTEMRA [Suspect]
     Active Substance: TOCILIZUMAB
     Indication: OFF LABEL USE
     Route: 042
     Dates: start: 20171102, end: 20171102
  20. ROACTEMRA [Suspect]
     Active Substance: TOCILIZUMAB
     Indication: OFF LABEL USE
     Route: 058
     Dates: start: 201802
  21. ARCOXIA [Concomitant]
     Active Substance: ETORICOXIB
     Indication: OFF LABEL USE
     Dosage: 90.0MG UNKNOWN
     Route: 065
  22. FOLIC ACID. [Concomitant]
     Active Substance: FOLIC ACID
     Indication: OFF LABEL USE
     Dosage: 1.0MG UNKNOWN
     Route: 065
  23. OMEPRAZOL [Concomitant]
     Active Substance: OMEPRAZOLE
     Indication: OFF LABEL USE
     Route: 065

REACTIONS (15)
  - Respiratory tract infection [Recovered/Resolved]
  - Dyspnoea [Unknown]
  - Lymphadenopathy [Unknown]
  - Arthralgia [Not Recovered/Not Resolved]
  - Bronchiolitis [Recovered/Resolved]
  - Oedema peripheral [Not Recovered/Not Resolved]
  - Dysphonia [Not Recovered/Not Resolved]
  - Hypercholesterolaemia [Unknown]
  - Dyspnoea exertional [Unknown]
  - Fatigue [Unknown]
  - Obstructive airways disorder [Unknown]
  - Oropharyngeal pain [Unknown]
  - Dysphonia [Unknown]
  - Cough [Not Recovered/Not Resolved]
  - Off label use [Unknown]

NARRATIVE: CASE EVENT DATE: 201801
